FAERS Safety Report 10251939 (Version 1)
Quarter: 2014Q2

REPORT INFORMATION
  Report Type: Spontaneous
  Country: US (occurrence: None)
  Receive Date: 20140619
  Receipt Date: 20140619
  Transmission Date: 20141212
  Serious: Yes (Death, Hospitalization)
  Sender: FDA-Public Use
  Company Number: AUR-APL-2014-06516

PATIENT
  Age: 84 Year
  Sex: Female

DRUGS (5)
  1. CITALOPRAM 20MG (CITALOPRAM) UNKNOWN, 20MG [Suspect]
     Indication: PRODUCT USED FOR UNKNOWN INDICATION
  2. OLANZAPINE 10MG (OLANZAPINE) UNKNOWN, 10MG [Suspect]
     Indication: AGITATION
     Route: 048
  3. MEMANTINE (MEMANTINE) [Suspect]
     Indication: DEMENTIA
  4. POLYETHYLENE GLYCOL (MACROGOL) [Concomitant]
  5. LORAZEPAM (LORAZEPAM) [Concomitant]

REACTIONS (5)
  - Convulsion [None]
  - Fall [None]
  - Confusional state [None]
  - Agitation [None]
  - Lethargy [None]
